FAERS Safety Report 11589255 (Version 3)
Quarter: 2015Q4

REPORT INFORMATION
  Report Type: Spontaneous
  Country: GB (occurrence: GB)
  Receive Date: 20151002
  Receipt Date: 20151202
  Transmission Date: 20160304
  Serious: Yes (Hospitalization, Disabling, Other)
  Sender: FDA-Public Use
  Company Number: GB-PFIZER INC-2015325293

PATIENT
  Age: 27 Year
  Sex: Female
  Weight: 70 kg

DRUGS (5)
  1. DEPO-PROVERA [Suspect]
     Active Substance: MEDROXYPROGESTERONE ACETATE
     Dosage: 150 MG, EVERY 3 MONTHS
     Route: 030
     Dates: start: 20121010
  2. VENTOLIN [Concomitant]
     Active Substance: ALBUTEROL SULFATE
     Dosage: UNK
     Dates: start: 2012
  3. MONTELUKAST [Concomitant]
     Active Substance: MONTELUKAST SODIUM
     Dosage: 10 MG, DAILY
     Route: 048
     Dates: start: 2012
  4. LEVOCETIRIZIN [Concomitant]
     Dosage: 1 DF, DAILY
     Route: 048
     Dates: start: 2012
  5. FLUTICASONE [Concomitant]
     Active Substance: FLUTICASONE\FLUTICASONE PROPIONATE
     Indication: SEASONAL ALLERGY
     Dosage: 2 DF, DAILY
     Dates: start: 2012

REACTIONS (5)
  - Staphylococcal abscess [Not Recovered/Not Resolved]
  - Injection site pain [Not Recovered/Not Resolved]
  - Injection site erythema [Not Recovered/Not Resolved]
  - Pyrexia [Unknown]
  - Injection site cellulitis [Not Recovered/Not Resolved]

NARRATIVE: CASE EVENT DATE: 20150908
